FAERS Safety Report 7477022-X (Version None)
Quarter: 2011Q2

REPORT INFORMATION
  Report Type: 
  Country: None (occurrence: None)
  Receive Date: 20110512
  Receipt Date: 20110505
  Transmission Date: 20111010
  Serious: Yes (Hospitalization)
  Sender: FDA-Public Use
  Company Number: US-GILEAD-2010-0034777

PATIENT
  Sex: Female

DRUGS (22)
  1. WARFARIN SODIUM [Concomitant]
  2. ALBUTEROL SULFATE AUTOHALER [Concomitant]
  3. ZOCOR [Concomitant]
  4. PRILOSEC [Concomitant]
  5. ALENDRONATE SODIUM [Concomitant]
  6. FISH OIL [Concomitant]
  7. FUROSEMIDE [Concomitant]
  8. TRAZODONE HCL [Concomitant]
  9. SYMBICORT [Concomitant]
  10. GABAPENTIN [Concomitant]
  11. MUTLIVITAMIN [Concomitant]
  12. LETAIRIS [Suspect]
     Indication: PULMONARY ARTERIAL HYPERTENSION
     Route: 048
     Dates: start: 20100916
  13. LETAIRIS [Suspect]
     Indication: INTERSTITIAL LUNG DISEASE
  14. ASPIRIN [Concomitant]
  15. FENOFIBRATE [Concomitant]
  16. PREDNISONE [Concomitant]
  17. OXYCODONE HCL [Concomitant]
  18. AZATHIOPRINE [Concomitant]
  19. CALCIUM CARBONATE [Concomitant]
  20. ALLOPURINOL [Concomitant]
  21. ADCIRCA [Concomitant]
  22. PROAIR HFA [Concomitant]

REACTIONS (2)
  - UNRESPONSIVE TO STIMULI [None]
  - PNEUMONIA [None]
